FAERS Safety Report 7207254-7 (Version None)
Quarter: 2010Q4

REPORT INFORMATION
  Report Type: 
  Country: None (occurrence: None)
  Receive Date: 20101230
  Receipt Date: 20101230
  Transmission Date: 20110411
  Serious: Yes (Life-Threatening)
  Sender: FDA-Public Use
  Company Number: None

PATIENT
  Sex: Male
  Weight: 72.9 kg

DRUGS (7)
  1. ERBITUX [Suspect]
     Indication: OROPHARYNGEAL CANCER STAGE UNSPECIFIED
     Dosage: 760 MG LOADING DOSE X1 IV DRIP
     Route: 041
     Dates: start: 20101229, end: 20101229
  2. RADIATION THERAPY [Concomitant]
  3. AMLODIPINE [Concomitant]
  4. ATENOLOL [Concomitant]
  5. OXYCODONE HCL [Concomitant]
  6. PLAVIX [Concomitant]
  7. SIMVASTATIN [Concomitant]

REACTIONS (5)
  - CARDIO-RESPIRATORY ARREST [None]
  - DIZZINESS [None]
  - MYDRIASIS [None]
  - RESPIRATORY DISORDER [None]
  - UNRESPONSIVE TO STIMULI [None]
